FAERS Safety Report 4385823-X (Version None)
Quarter: 2004Q2

REPORT INFORMATION
  Report Type: 
  Country: None (occurrence: None)
  Receive Date: 20040628
  Receipt Date: 20040616
  Transmission Date: 20050107
  Serious: Yes (Other)
  Sender: FDA-Public Use
  Company Number: US-ROCHE-371377

PATIENT
  Age: 71 Year
  Sex: Female

DRUGS (6)
  1. XELODA [Suspect]
     Route: 048
     Dates: start: 20020725
  2. XELODA [Suspect]
     Route: 048
     Dates: end: 20030305
  3. TAXOTERE [Suspect]
     Indication: DRUG USE FOR UNKNOWN INDICATION
     Route: 065
  4. COZAAR [Concomitant]
  5. NORVASC [Concomitant]
  6. LASIX [Concomitant]

REACTIONS (5)
  - DIARRHOEA [None]
  - HEPATIC CIRRHOSIS [None]
  - HEPATIC NEOPLASM [None]
  - LIVER FUNCTION TEST ABNORMAL [None]
  - STOMATITIS [None]
